FAERS Safety Report 11180027 (Version 2)
Quarter: 2015Q4

REPORT INFORMATION
  Report Type: Other
  Country: US (occurrence: US)
  Receive Date: 20150611
  Receipt Date: 20151223
  Transmission Date: 20160304
  Serious: Yes (Death, Other)
  Sender: FDA-Public Use
  Company Number: US-ACORDA-ACO_112265_2015

PATIENT
  Age: 64 Year
  Sex: Female

DRUGS (1)
  1. AMPYRA [Suspect]
     Active Substance: DALFAMPRIDINE
     Indication: PRODUCT USED FOR UNKNOWN INDICATION
     Dosage: 10 MG, BID
     Route: 048
     Dates: start: 20111207

REACTIONS (2)
  - Death [Fatal]
  - Breast cancer [Unknown]

NARRATIVE: CASE EVENT DATE: 20150524
